FAERS Safety Report 9606673 (Version 1)
Quarter: 2013Q4

REPORT INFORMATION
  Report Type: Spontaneous
  Country: US (occurrence: US)
  Receive Date: 20131008
  Receipt Date: 20131008
  Transmission Date: 20140711
  Serious: No
  Sender: FDA-Public Use
  Company Number: US-AMGEN-USASP2013064751

PATIENT
  Age: 87 Year
  Sex: Female

DRUGS (9)
  1. PROLIA [Suspect]
     Indication: PRODUCT USED FOR UNKNOWN INDICATION
     Dosage: UNK
     Route: 065
     Dates: start: 201211
  2. LEVOTHYROXINE [Concomitant]
     Dosage: UNK UNK, ONE TIME DOSE
     Route: 065
  3. OMEPRAZOLE [Concomitant]
     Dosage: UNK UNK, ONE TIME DOSE
     Route: 065
  4. FUROSEMIDE [Concomitant]
     Route: 065
  5. CENTRUM                            /02217401/ [Concomitant]
     Dosage: UNK UNK, ONE TIME DOSE
     Route: 065
  6. FISH OIL                           /00492901/ [Concomitant]
     Dosage: UNK UNK, ONE TIME DOSE
     Route: 065
  7. MONTELUKAST                        /01362602/ [Concomitant]
     Dosage: UNK UNK, ONE TIME DOSE
     Route: 065
  8. CALCIUM [Concomitant]
     Route: 065
  9. IRON [Concomitant]
     Route: 065

REACTIONS (6)
  - Pruritus generalised [Unknown]
  - Bone disorder [Unknown]
  - Abdominal distension [Unknown]
  - Local swelling [Unknown]
  - Joint swelling [Unknown]
  - Weight decreased [Unknown]
